FAERS Safety Report 6930208-2 (Version None)
Quarter: 2010Q3

REPORT INFORMATION
  Report Type: 
  Country: None (occurrence: None)
  Receive Date: 20100818
  Receipt Date: 20100714
  Transmission Date: 20110219
  Serious: Yes (Hospitalization, Other)
  Sender: FDA-Public Use
  Company Number: NL-TEVA-244677ISR

PATIENT
  Sex: Male

DRUGS (2)
  1. CODEINE [Suspect]
     Indication: COUGH
     Route: 048
     Dates: start: 20091101
  2. CODEINE [Suspect]
     Route: 048
     Dates: start: 20100101

REACTIONS (3)
  - CHOLECYSTITIS [None]
  - SPHINCTER OF ODDI DYSFUNCTION [None]
  - URINARY RETENTION [None]
